FAERS Safety Report 23469726 (Version 1)
Quarter: 2024Q1

REPORT INFORMATION
  Report Type: Spontaneous
  Country: GB (occurrence: GB)
  Receive Date: 20240202
  Receipt Date: 20240202
  Transmission Date: 20240410
  Serious: Yes (Disabling)
  Sender: FDA-Public Use
  Company Number: None

PATIENT
  Age: 71 Year
  Sex: Female
  Weight: 91 kg

DRUGS (8)
  1. EZETIMIBE [Suspect]
     Active Substance: EZETIMIBE
     Indication: Blood cholesterol increased
     Dosage: 10 MILLIGRAM, QD (TABLET)
     Route: 065
     Dates: start: 20230822
  2. ATORVASTATIN [Concomitant]
     Active Substance: ATORVASTATIN
     Indication: Blood cholesterol
     Dosage: UNK (TAKE ONE EACH EVENING TO REDUCE CHOLESTEROL)
     Route: 065
     Dates: start: 20230317, end: 20230928
  3. FUROSEMIDE [Concomitant]
     Active Substance: FUROSEMIDE
     Indication: Oedema peripheral
     Dosage: UNK (TAKE ONE EACH MORNING TO REDUCE LEG SWELLING)
     Route: 065
     Dates: start: 20230613
  4. KENALOG [Concomitant]
     Active Substance: TRIAMCINOLONE ACETONIDE
     Indication: Ill-defined disorder
     Dosage: UNK (ONE IMMEDIATELY)
     Route: 065
     Dates: start: 20230705, end: 20230706
  5. LIDOCAINE [Concomitant]
     Active Substance: LIDOCAINE
     Indication: Ill-defined disorder
     Dosage: UNK (USE AS DIRECTED)
     Route: 065
     Dates: start: 20230705, end: 20230706
  6. NITROFURANTOIN [Concomitant]
     Active Substance: NITROFURANTOIN
     Indication: Infection
     Dosage: 1 DOSAGE FORM, BID
     Route: 065
     Dates: start: 20230911
  7. OMEPRAZOLE [Concomitant]
     Active Substance: OMEPRAZOLE
     Indication: Ill-defined disorder
     Dosage: UNK, BID (TAKE ONE TWICE A DAY)
     Route: 065
     Dates: start: 20180906
  8. URSODIOL [Concomitant]
     Active Substance: URSODIOL
     Indication: Ill-defined disorder
     Dosage: UNK (TAKE ONE IN THE MORNING, ONE AT MIDAAY, TWO IN ..)
     Route: 065
     Dates: start: 20180906

REACTIONS (2)
  - Diarrhoea [Recovered/Resolved]
  - Abdominal pain [Recovered/Resolved]
